FAERS Safety Report 5679273-3 (Version None)
Quarter: 2008Q1

REPORT INFORMATION
  Report Type: 
  Country: None (occurrence: None)
  Receive Date: 20080325
  Receipt Date: 20080319
  Transmission Date: 20080703
  Serious: Yes (Death)
  Sender: FDA-Public Use
  Company Number: NL-BAYER-200814632GPV

PATIENT

DRUGS (4)
  1. MABCAMPATH [Suspect]
     Indication: T-CELL DEPLETION
     Route: 042
     Dates: start: 20060101, end: 20070101
  2. MABCAMPATH [Suspect]
     Route: 042
     Dates: start: 20060101, end: 20070101
  3. MABCAMPATH [Suspect]
     Route: 042
     Dates: start: 20060101, end: 20070101
  4. ANTITHYMOCYTE GLOBULIN [Concomitant]

REACTIONS (1)
  - EPSTEIN-BARR VIRUS INFECTION [None]
